FAERS Safety Report 4873662-2 (Version None)
Quarter: 2006Q1

REPORT INFORMATION
  Report Type: 
  Country: None (occurrence: None)
  Receive Date: 20060103
  Receipt Date: 20060103
  Transmission Date: 20060701
  Serious: Yes (Death)
  Sender: FDA-Public Use
  Company Number: None

PATIENT
  Age: 38 Year
  Sex: Female
  Weight: 122.4712 kg

DRUGS (3)
  1. ZOFRAN [Suspect]
     Indication: VOMITING
     Dates: start: 20040911, end: 20040914
  2. REGLAN [Suspect]
     Indication: VOMITING
     Dates: start: 20040911, end: 20040914
  3. PHENERGAN [Suspect]
     Indication: VOMITING
     Dates: start: 20040911, end: 20040914

REACTIONS (4)
  - DRUG EXPOSURE DURING PREGNANCY [None]
  - DRUG INEFFECTIVE [None]
  - INTRA-UTERINE DEATH [None]
  - METRORRHAGIA [None]
